FAERS Safety Report 7530222-2 (Version None)
Quarter: 2011Q2

REPORT INFORMATION
  Report Type: 
  Country: None (occurrence: None)
  Receive Date: 20110526
  Receipt Date: 20110518
  Transmission Date: 20111010
  Serious: Yes (Hospitalization, Other)
  Sender: FDA-Public Use
  Company Number: WAES 1105USA02938

PATIENT
  Age: 87 Year
  Sex: Female
  Weight: 59.8748 kg

DRUGS (2)
  1. DECADRON [Suspect]
     Indication: MULTIPLE MYELOMA
     Dosage: 40 MG/WKY/PO
     Route: 048
     Dates: start: 20101214
  2. VELCADE [Suspect]
     Indication: MULTIPLE MYELOMA
     Dosage: 1.3 MG/M[2]WKY/IV
     Route: 042
     Dates: start: 20101214

REACTIONS (4)
  - CARDIAC FAILURE CONGESTIVE [None]
  - ATRIAL FIBRILLATION [None]
  - SEPSIS [None]
  - NEPHROPATHY [None]
